FAERS Safety Report 5918021-6 (Version None)
Quarter: 2008Q4

REPORT INFORMATION
  Report Type: 
  Country: None (occurrence: None)
  Receive Date: 20081014
  Receipt Date: 20081002
  Transmission Date: 20090506
  Serious: Yes (Other)
  Sender: FDA-Public Use
  Company Number: JP-PFIZER INC-2008071614

PATIENT
  Sex: Female
  Weight: 63 kg

DRUGS (6)
  1. AROMASIN [Suspect]
     Indication: BREAST CANCER
     Route: 048
     Dates: start: 20070908
  2. FARMORUBICIN [Suspect]
     Indication: BREAST CANCER
     Dosage: DAILY DOSE:100MG
     Route: 042
     Dates: start: 20070521, end: 20070904
  3. ENDOXAN [Suspect]
     Indication: BREAST CANCER
     Dosage: DAILY DOSE:830MG
     Route: 042
     Dates: start: 20070521, end: 20070904
  4. FLUOROURACIL [Suspect]
     Indication: BREAST CANCER
     Dosage: DAILY DOSE:825MG
     Route: 042
     Dates: start: 20070521, end: 20070904
  5. BASEN [Concomitant]
     Indication: DIABETES MELLITUS
     Route: 048
     Dates: start: 20070419
  6. JUVELA NICOTINATE [Concomitant]
     Indication: HYPERLIPIDAEMIA
     Route: 048
     Dates: start: 20080422

REACTIONS (1)
  - HAEMATURIA [None]
